FAERS Safety Report 7824106-X (Version None)
Quarter: 2011Q4

REPORT INFORMATION
  Report Type: 
  Country: None (occurrence: None)
  Receive Date: 20111019
  Receipt Date: 20111017
  Transmission Date: 20120403
  Serious: Yes (Death, Other)
  Sender: FDA-Public Use
  Company Number: PHHY2011JP47937

PATIENT
  Sex: Male
  Weight: 62 kg

DRUGS (13)
  1. VALSARTAN [Suspect]
     Dosage: 80 MG, QD
     Route: 048
     Dates: start: 20090913, end: 20091001
  2. ADALAT [Concomitant]
     Dosage: 20 MG, UNK
     Route: 048
     Dates: start: 20041220
  3. ADALAT [Concomitant]
     Dosage: 40 MG, UNK
     Route: 048
     Dates: start: 20041220, end: 20090828
  4. RENAGEL [Concomitant]
     Dosage: 6 DF, UNK
     Route: 048
     Dates: start: 20090720
  5. DORNER [Concomitant]
     Dosage: 60 UG, UNK
     Route: 048
     Dates: start: 20000115
  6. VALSARTAN [Suspect]
     Dosage: 80 MG, QD
     Route: 048
     Dates: start: 20070911, end: 20080409
  7. VALSARTAN [Suspect]
     Dosage: 160 MG, QD
     Route: 048
     Dates: start: 20080410, end: 20090912
  8. VALSARTAN [Suspect]
     Dosage: 40 MG, QD
     Route: 048
     Dates: start: 20091002, end: 20091013
  9. CALCIUM CARBONATE [Concomitant]
     Dosage: 1 G, UNK
     Route: 048
     Dates: start: 20000115, end: 20090720
  10. ASPIRIN [Concomitant]
     Dosage: 1 DF, UNK
     Route: 048
     Dates: start: 20000115, end: 20090720
  11. NORVASC [Concomitant]
     Indication: HYPERTENSION
     Dosage: 5 MG, UNK
     Route: 048
     Dates: start: 20090828, end: 20090912
  12. ADALAT [Concomitant]
     Indication: HYPERTENSION
     Dosage: 40 MG, UNK
     Route: 048
     Dates: start: 20041220
  13. RABEPRAZOLE SODIUM [Concomitant]
     Dosage: 10 MG, UNK
     Route: 048
     Dates: start: 20071004

REACTIONS (4)
  - BLOOD UREA INCREASED [None]
  - BLOOD CREATININE INCREASED [None]
  - DEATH [None]
  - BLOOD PRESSURE DIASTOLIC DECREASED [None]
